FAERS Safety Report 7911746-2 (Version None)
Quarter: 2011Q4

REPORT INFORMATION
  Report Type: 
  Country: None (occurrence: None)
  Receive Date: 20111114
  Receipt Date: 20111114
  Transmission Date: 20120403
  Serious: Yes (Life-Threatening)
  Sender: FDA-Public Use
  Company Number: None

PATIENT
  Age: 52 Year
  Sex: Female
  Weight: 1128.5 kg

DRUGS (1)
  1. TOBRAMYCIN [Suspect]
     Indication: PSEUDOMONAS INFECTION
     Dosage: 180MG
     Route: 042
     Dates: start: 20110919, end: 20111009

REACTIONS (2)
  - RESPIRATORY DEPRESSION [None]
  - APNOEA [None]
